FAERS Safety Report 6652257-4 (Version None)
Quarter: 2010Q1

REPORT INFORMATION
  Report Type: 
  Country: None (occurrence: None)
  Receive Date: 20100325
  Receipt Date: 20100316
  Transmission Date: 20100710
  Serious: Yes (Hospitalization)
  Sender: FDA-Public Use
  Company Number: HK-WYE-G05767210

PATIENT
  Sex: Male
  Weight: 72.8 kg

DRUGS (3)
  1. TEMSIROLIMUS [Suspect]
     Indication: HEPATIC NEOPLASM MALIGNANT NON-RESECTABLE
     Dosage: 30MG ONCE WEEKLY
     Route: 042
     Dates: start: 20100310
  2. BENZYDAMINE HYDROCHLORIDE [Concomitant]
     Indication: STOMATITIS
     Dosage: 10ML QID
     Route: 048
     Dates: start: 20100310
  3. NYSTATIN [Concomitant]
     Indication: STOMATITIS
     Dosage: 1ML QID
     Route: 048
     Dates: start: 20100310

REACTIONS (1)
  - SYNCOPE [None]
